FAERS Safety Report 16683313 (Version 1)
Quarter: 2019Q3

REPORT INFORMATION
  Report Type: Spontaneous
  Country: US (occurrence: US)
  Receive Date: 20190807
  Receipt Date: 20190807
  Transmission Date: 20191007
  Serious: Yes (Other)
  Sender: FDA-Public Use
  Company Number: None

PATIENT
  Age: 53 Year
  Sex: Female
  Weight: 74.2 kg

DRUGS (3)
  1. ABALOPARATIDE [Suspect]
     Active Substance: ABALOPARATIDE
     Indication: OSTEOPOROSIS
     Route: 058
     Dates: start: 20190416, end: 20190514
  2. FLUOXETINE [Concomitant]
     Active Substance: FLUOXETINE HYDROCHLORIDE
     Dates: start: 20180606
  3. ERGOCALCIFEROL 50,000 UNIT [Concomitant]
     Dates: start: 20141113

REACTIONS (3)
  - Myalgia [None]
  - Pollakiuria [None]
  - Arthralgia [None]

NARRATIVE: CASE EVENT DATE: 20190426
